FAERS Safety Report 6666883-X (Version None)
Quarter: 2010Q1

REPORT INFORMATION
  Report Type: 
  Country: None (occurrence: None)
  Receive Date: 20100331
  Receipt Date: 20100319
  Transmission Date: 20100710
  Serious: Yes (Congenital Anomaly)
  Sender: FDA-Public Use
  Company Number: LEO-2010-00229

PATIENT
  Age: 42 Year
  Sex: Female
  Weight: 80 kg

DRUGS (13)
  1. INNOHEP [Suspect]
     Indication: COMPLICATION OF PREGNANCY
     Dosage: SEE IMAGE
     Route: 058
     Dates: start: 20051021, end: 20060112
  2. INNOHEP [Suspect]
     Indication: PROPHYLAXIS
     Dosage: SEE IMAGE
     Route: 058
     Dates: start: 20051021, end: 20060112
  3. INNOHEP [Suspect]
     Indication: PROPHYLAXIS OF ABORTION
     Dosage: SEE IMAGE
     Route: 058
     Dates: start: 20051021, end: 20060112
  4. INNOHEP [Suspect]
     Indication: THROMBOSIS PROPHYLAXIS
     Dosage: SEE IMAGE
     Route: 058
     Dates: start: 20051021, end: 20060112
  5. INNOHEP [Suspect]
     Indication: COMPLICATION OF PREGNANCY
     Dosage: SEE IMAGE
     Route: 058
     Dates: start: 20060112, end: 20060228
  6. INNOHEP [Suspect]
     Indication: PROPHYLAXIS
     Dosage: SEE IMAGE
     Route: 058
     Dates: start: 20060112, end: 20060228
  7. INNOHEP [Suspect]
     Indication: PROPHYLAXIS OF ABORTION
     Dosage: SEE IMAGE
     Route: 058
     Dates: start: 20060112, end: 20060228
  8. INNOHEP [Suspect]
     Indication: THROMBOSIS PROPHYLAXIS
     Dosage: SEE IMAGE
     Route: 058
     Dates: start: 20060112, end: 20060228
  9. INNOHEP [Suspect]
     Indication: COMPLICATION OF PREGNANCY
     Dosage: SEE IMAGE
     Route: 058
     Dates: start: 20020228, end: 20060508
  10. INNOHEP [Suspect]
     Indication: PROPHYLAXIS
     Dosage: SEE IMAGE
     Route: 058
     Dates: start: 20020228, end: 20060508
  11. INNOHEP [Suspect]
     Indication: PROPHYLAXIS OF ABORTION
     Dosage: SEE IMAGE
     Route: 058
     Dates: start: 20020228, end: 20060508
  12. INNOHEP [Suspect]
     Indication: THROMBOSIS PROPHYLAXIS
     Dosage: SEE IMAGE
     Route: 058
     Dates: start: 20020228, end: 20060508
  13. ASPIRIN [Concomitant]

REACTIONS (4)
  - CAESAREAN SECTION [None]
  - DRUG EXPOSURE DURING PREGNANCY [None]
  - HAEMORRHAGE [None]
  - INTRA-UTERINE DEATH [None]
